FAERS Safety Report 21202311 (Version 1)
Quarter: 2022Q3

REPORT INFORMATION
  Report Type: Spontaneous
  Country: US (occurrence: US)
  Receive Date: 20220811
  Receipt Date: 20220811
  Transmission Date: 20221026
  Serious: Yes (Other)
  Sender: FDA-Public Use
  Company Number: US-ALLERGAN-2225730US

PATIENT
  Sex: Male

DRUGS (1)
  1. REFRESH RELIEVA [Suspect]
     Active Substance: CARBOXYMETHYLCELLULOSE SODIUM\GLYCERIN
     Indication: Dry eye
     Dosage: AT NIGHT AND IN THE MORNING

REACTIONS (5)
  - Cataract [Unknown]
  - Photophobia [Unknown]
  - Ocular hyperaemia [Unknown]
  - Eye pain [Unknown]
  - Drug ineffective [Unknown]
